FAERS Safety Report 8154184-2 (Version None)
Quarter: 2012Q1

REPORT INFORMATION
  Report Type: 
  Country: None (occurrence: None)
  Receive Date: 20120217
  Receipt Date: 20120217
  Transmission Date: 20120608
  Serious: Yes (Other)
  Sender: FDA-Public Use
  Company Number: None

PATIENT
  Age: 78 Year
  Sex: Male

DRUGS (6)
  1. DIVALPROEX (VALPROATE SEMISODIUM) UNSPECIFIED [Concomitant]
  2. LISTERINE POCKETPAK COOLMINT (ORAL CARE PRODUCTS) FILMSTRIP [Suspect]
     Indication: BREATH ODOUR
     Dosage: ( ,  IN 1 AS NECESSSARY, ORAL
     Route: 048
     Dates: end: 20111204
  3. TRAMADOL HCL [Concomitant]
  4. AMITRIPTYLINE (AMITRIPTYLINE) UNSPECIFIED [Concomitant]
  5. OMEPRAZOLE (OMEPRAZOLE) UNSPECIFIED [Concomitant]
  6. MAGIC MOUTHWASH (STOMATOLOGICALS, MOUTH PREPARATIONS) UNSPECIFIED [Concomitant]

REACTIONS (8)
  - OROPHARYNGEAL PAIN [None]
  - TONGUE DISCOLOURATION [None]
  - TONGUE DISORDER [None]
  - ABDOMINAL DISCOMFORT [None]
  - GASTROOESOPHAGEAL REFLUX DISEASE [None]
  - SWOLLEN TONGUE [None]
  - ORAL PAIN [None]
  - APHAGIA [None]
